FAERS Safety Report 7220098-5 (Version None)
Quarter: 2011Q1

REPORT INFORMATION
  Report Type: 
  Country: None (occurrence: None)
  Receive Date: 20110111
  Receipt Date: 20101230
  Transmission Date: 20110831
  Serious: Yes (Other)
  Sender: FDA-Public Use
  Company Number: B0690031A

PATIENT
  Sex: Female

DRUGS (2)
  1. IMITREX [Suspect]
     Indication: MIGRAINE
     Route: 058
     Dates: start: 20101022
  2. CONTRACEPTION [Concomitant]
     Route: 065

REACTIONS (2)
  - PRESBYOPIA [None]
  - ANTERIOR CHAMBER DISORDER [None]
